FAERS Safety Report 14989088 (Version 5)
Quarter: 2018Q3

REPORT INFORMATION
  Report Type: Spontaneous
  Country: TW (occurrence: TW)
  Receive Date: 20180608
  Receipt Date: 20180806
  Transmission Date: 20181010
  Serious: Yes (Hospitalization)
  Sender: FDA-Public Use
  Company Number: TW-SA-2018SA148673

PATIENT
  Age: 49 Year
  Sex: Male

DRUGS (2)
  1. ISONIAZID. [Suspect]
     Active Substance: ISONIAZID
     Dosage: 900 MG, QW
     Route: 048
     Dates: start: 20180407, end: 20180525
  2. PRIFTIN [Suspect]
     Active Substance: RIFAPENTINE
     Dosage: 900 MG, QW
     Route: 048
     Dates: start: 20180407, end: 20180525

REACTIONS (4)
  - Yellow skin [Recovered/Resolved]
  - Influenza like illness [Recovered/Resolved]
  - Scleral discolouration [Recovered/Resolved]
  - Chromaturia [Recovered/Resolved]

NARRATIVE: CASE EVENT DATE: 20180525
